FAERS Safety Report 12828392 (Version 1)
Quarter: 2016Q4

REPORT INFORMATION
  Report Type: Spontaneous
  Country: NO (occurrence: NO)
  Receive Date: 20161007
  Receipt Date: 20161007
  Transmission Date: 20170207
  Serious: Yes (Death)
  Sender: FDA-Public Use
  Company Number: NO-PFIZER INC-2016464017

PATIENT
  Age: 67 Year
  Sex: Female

DRUGS (11)
  1. MARCAIN [Concomitant]
     Active Substance: BUPIVACAINE HYDROCHLORIDE
     Indication: ANAESTHESIA PROCEDURE
     Dosage: UNK
     Route: 051
     Dates: start: 20160829
  2. BRICANYL [Concomitant]
     Active Substance: TERBUTALINE SULFATE
     Dosage: 0.5 MG, 1-2 INHALATIONS 6 TIMES A DAY WHEN NECCESSARY
     Route: 055
  3. CYKLOKAPRON [Suspect]
     Active Substance: TRANEXAMIC ACID
     Indication: PROPHYLAXIS
     Dosage: 1 G
     Dates: start: 20160829
  4. PARACETAMOL [Concomitant]
     Active Substance: ACETAMINOPHEN
     Dosage: 500 MG, 1 TABLET UP TO 3 TIMES A DAY
     Route: 048
  5. KEFLIN [Suspect]
     Active Substance: CEPHALOTHIN SODIUM
     Indication: ANTIBIOTIC PROPHYLAXIS
     Dosage: 4 G
     Dates: start: 20160829
  6. DUROFERON [Concomitant]
     Active Substance: FERROUS SULFATE
     Dosage: 100 MG, ALTERNATE DAY
     Route: 048
  7. IBUMETIN [Concomitant]
     Active Substance: IBUPROFEN
     Dosage: 400 MG, 1 TABLET UP TO 3 TIMES A DAY WHEN NECCESSARY
     Route: 048
  8. GLUCOSAMIN ORIFARM [Concomitant]
     Dosage: 400 MG
     Route: 048
  9. DYNASTAT [Suspect]
     Active Substance: PARECOXIB SODIUM
     Indication: PROCEDURAL PAIN
     Dosage: 40 MG
     Route: 042
     Dates: start: 20160829
  10. PULMICORT TURBUHALER [Concomitant]
     Active Substance: BUDESONIDE
     Dosage: 200 UG, AS NECCESSARY
     Route: 055
  11. URSODEOXYCHOLIC ACID [Concomitant]
     Active Substance: URSODIOL
     Dosage: 500 MG, ALTERNATE DAY

REACTIONS (4)
  - Circulatory collapse [Fatal]
  - Bronchospasm [Fatal]
  - Hypotension [Fatal]
  - Hypoxia [Fatal]

NARRATIVE: CASE EVENT DATE: 20160829
